FAERS Safety Report 13872522 (Version 2)
Quarter: 2017Q3

REPORT INFORMATION
  Report Type: Spontaneous
  Country: US (occurrence: US)
  Receive Date: 20170816
  Receipt Date: 20170816
  Transmission Date: 20171127
  Serious: No
  Sender: FDA-Public Use
  Company Number: US-BAYER-2017-147298

PATIENT
  Age: 51 Year
  Sex: Female

DRUGS (2)
  1. MIRALAX [Suspect]
     Active Substance: POLYETHYLENE GLYCOL 3350
     Indication: ABDOMINAL DISCOMFORT
  2. MIRALAX [Suspect]
     Active Substance: POLYETHYLENE GLYCOL 3350
     Indication: PROPHYLAXIS
     Dosage: 1 DF, UNK
     Route: 048

REACTIONS (3)
  - Incorrect drug administration duration [Unknown]
  - Poor quality drug administered [Unknown]
  - Product use in unapproved indication [Unknown]
